FAERS Safety Report 23550919 (Version 5)
Quarter: 2025Q4

REPORT INFORMATION
  Report Type: Report from Study
  Country: KR (occurrence: KR)
  Receive Date: 20240221
  Receipt Date: 20251205
  Transmission Date: 20260117
  Serious: Yes (Death, Other)
  Sender: ABBVIE
  Company Number: KR-ABBVIE-5648190

PATIENT
  Age: 89 Year
  Sex: Male
  Weight: 55 kg

DRUGS (14)
  1. VENETOCLAX [Suspect]
     Active Substance: VENETOCLAX
     Indication: Acute myeloid leukaemia
     Route: 048
     Dates: start: 20240104, end: 20240104
  2. VENETOCLAX [Suspect]
     Active Substance: VENETOCLAX
     Indication: Acute myeloid leukaemia
     Route: 048
     Dates: start: 20240105, end: 20240105
  3. VENETOCLAX [Suspect]
     Active Substance: VENETOCLAX
     Indication: Acute myeloid leukaemia
     Route: 048
     Dates: start: 20240106, end: 20240110
  4. ALLOPURINOL [Concomitant]
     Active Substance: ALLOPURINOL
     Indication: Prophylaxis
     Dosage: TIME INTERVAL: 0.33333333 DAYS: FORM STRENGTH: 100 MILLIGRAM
     Route: 048
     Dates: start: 20240102, end: 20240116
  5. Maxipime boryung [Concomitant]
     Indication: C-reactive protein increased
     Dosage: TIME INTERVAL: 0.33333333 DAYS: FORM STRENGTH: 1G
     Route: 042
     Dates: start: 20240104, end: 20240118
  6. AMISULPRIDE [Concomitant]
     Active Substance: AMISULPRIDE
     Indication: Delirium
     Dosage: FORM STRENGTH: 100 MILLIGRAM
     Route: 048
     Dates: start: 20240116, end: 20240119
  7. DACOGEN [Concomitant]
     Active Substance: DECITABINE
     Indication: Acute myeloid leukaemia
     Route: 042
     Dates: start: 20240104, end: 20240108
  8. HARNAL [Concomitant]
     Active Substance: TAMSULOSIN HYDROCHLORIDE
     Indication: Benign prostatic hyperplasia
     Route: 048
     Dates: start: 20240104, end: 20240119
  9. ATIVAN [Concomitant]
     Active Substance: LORAZEPAM
     Indication: Delirium
     Dosage: FORM STRENGTH: 0.5MG
     Route: 048
     Dates: start: 20240105, end: 20240115
  10. ATIVAN [Concomitant]
     Active Substance: LORAZEPAM
     Indication: Delirium
     Route: 048
     Dates: start: 20240116, end: 20240119
  11. ATIVAN [Concomitant]
     Active Substance: LORAZEPAM
     Indication: Delirium
     Dosage: 2MG/0.5ML?DRUG START DATE JAN 2024
     Route: 030
     Dates: end: 20240126
  12. ABILIFY [Concomitant]
     Active Substance: ARIPIPRAZOLE
     Indication: Delirium
     Dosage: FORM STRENGTH: 1MG
     Route: 048
     Dates: start: 20240105, end: 20240115
  13. Ceftriaxone boryung [Concomitant]
     Indication: C-reactive protein increased
     Dosage: FORM STRENGTH: 2 GRAM
     Route: 042
     Dates: start: 20240124, end: 20240126
  14. TRANEXAMIC ACID [Concomitant]
     Active Substance: TRANEXAMIC ACID
     Indication: Haemoptysis
     Dosage: 500MG/5ML
     Route: 042
     Dates: start: 20240119, end: 20240122

REACTIONS (1)
  - Multiple organ dysfunction syndrome [Fatal]

NARRATIVE: CASE EVENT DATE: 20240118
